FAERS Safety Report 14983553 (Version 1)
Quarter: 2018Q2

REPORT INFORMATION
  Report Type: Spontaneous
  Country: US (occurrence: US)
  Receive Date: 20180517
  Receipt Date: 20180517
  Transmission Date: 20180711
  Serious: Yes (Disabling)
  Sender: FDA-Public Use
  Company Number: None

PATIENT
  Age: 64 Year
  Sex: Female
  Weight: 77.4 kg

DRUGS (3)
  1. LISONOPRIL [Concomitant]
  2. ONE A DAY MULTIVITAMIN [Concomitant]
  3. ALENDRONATE SODIUM TABLETS, USP [Suspect]
     Active Substance: ALENDRONATE SODIUM
     Indication: OSTEOPOROSIS PROPHYLAXIS
     Dosage: ?          QUANTITY:1 DF DOSAGE FORM;?
     Route: 048
     Dates: start: 20180501, end: 20180511

REACTIONS (9)
  - Decreased appetite [None]
  - Insomnia [None]
  - Back pain [None]
  - Joint stiffness [None]
  - Sleep disorder [None]
  - Myalgia [None]
  - Arthralgia [None]
  - Mobility decreased [None]
  - Fatigue [None]

NARRATIVE: CASE EVENT DATE: 20180501
